FAERS Safety Report 5343919-X (Version None)
Quarter: 2007Q2

REPORT INFORMATION
  Report Type: 
  Country: None (occurrence: None)
  Receive Date: 20070531
  Receipt Date: 20070516
  Transmission Date: 20071010
  Serious: Yes (Other)
  Sender: FDA-Public Use
  Company Number: 2007RR-07670

PATIENT
  Age: 71 Year
  Sex: Male

DRUGS (2)
  1. SIMVASTATIN [Suspect]
  2. PRAVASTATIN [Suspect]

REACTIONS (1)
  - MYASTHENIA GRAVIS [None]
